FAERS Safety Report 12549658 (Version 1)
Quarter: 2016Q3

REPORT INFORMATION
  Report Type: Spontaneous
  Country: US (occurrence: US)
  Receive Date: 20160712
  Receipt Date: 20160712
  Transmission Date: 20161109
  Serious: Yes (Other)
  Sender: FDA-Public Use
  Company Number: US-AKORN PHARMACEUTICALS-2016AKN00370

PATIENT
  Age: 15 Year
  Sex: Male
  Weight: 60.41 kg

DRUGS (1)
  1. MYORISAN [Suspect]
     Active Substance: ISOTRETINOIN
     Indication: ACNE
     Dosage: 1 TABLETS, 1X/DAY
     Route: 048
     Dates: start: 20160120, end: 201606

REACTIONS (12)
  - Decreased appetite [Unknown]
  - Weight decreased [Recovering/Resolving]
  - Sleep disorder [Recovered/Resolved]
  - Pallor [Unknown]
  - Gastritis viral [None]
  - Hepatitis viral [None]
  - Decreased activity [Unknown]
  - Aspartate aminotransferase increased [Recovered/Resolved]
  - Infectious mononucleosis [Recovered/Resolved]
  - Alanine aminotransferase increased [Recovered/Resolved]
  - Fatigue [Unknown]
  - Nausea [Recovering/Resolving]

NARRATIVE: CASE EVENT DATE: 2016
